FAERS Safety Report 5640877-5 (Version None)
Quarter: 2008Q1

REPORT INFORMATION
  Report Type: 
  Country: None (occurrence: None)
  Receive Date: 20080227
  Receipt Date: 20080221
  Transmission Date: 20080703
  Serious: Yes (Hospitalization)
  Sender: FDA-Public Use
  Company Number: A0712022A

PATIENT

DRUGS (3)
  1. VALTREX [Suspect]
     Indication: DRUG USE FOR UNKNOWN INDICATION
  2. KALETRA [Concomitant]
     Indication: DRUG USE FOR UNKNOWN INDICATION
  3. TRUVADA [Concomitant]
     Indication: DRUG USE FOR UNKNOWN INDICATION

REACTIONS (1)
  - HAEMOLYTIC ANAEMIA [None]
